FAERS Safety Report 7693893-6 (Version None)
Quarter: 2011Q3

REPORT INFORMATION
  Report Type: 
  Country: None (occurrence: None)
  Receive Date: 20110819
  Receipt Date: 20110816
  Transmission Date: 20111222
  Serious: Yes (Death)
  Sender: FDA-Public Use
  Company Number: US-SANOFI-AVENTIS-2011SA041508

PATIENT
  Age: 70 Year
  Sex: Male
  Weight: 111.36 kg

DRUGS (6)
  1. CRESTOR [Concomitant]
     Indication: CORONARY ARTERY DISEASE
  2. OMEPRAZOLE [Concomitant]
  3. ASPIRIN [Concomitant]
     Indication: CORONARY ARTERY DISEASE
  4. MULTAQ [Suspect]
     Route: 048
     Dates: start: 20101203, end: 20110611
  5. COUMADIN [Concomitant]
     Indication: ATRIAL FIBRILLATION
  6. NIACIN [Concomitant]
     Indication: CORONARY ARTERY DISEASE

REACTIONS (2)
  - MYOCARDIAL INFARCTION [None]
  - VENTRICULAR FIBRILLATION [None]
